FAERS Safety Report 16935682 (Version 3)
Quarter: 2021Q1

REPORT INFORMATION
  Report Type: Spontaneous
  Country: IN (occurrence: IN)
  Receive Date: 20191018
  Receipt Date: 20210224
  Transmission Date: 20210419
  Serious: Yes (Other)
  Sender: FDA-Public Use
  Company Number: IN-PFIZER INC-2019155950

PATIENT
  Age: 45 Year
  Sex: Female

DRUGS (7)
  1. ZOLDONAT [Concomitant]
     Dosage: UNK
     Dates: start: 2017
  2. FEMARA [Concomitant]
     Active Substance: LETROZOLE
     Dosage: 1 DF, DAILY FOR 4 MONTHS
  3. FEMARA [Concomitant]
     Active Substance: LETROZOLE
     Dosage: UNK (X6MONTHS)
     Dates: start: 20171219
  4. PALBACE [Suspect]
     Active Substance: PALBOCICLIB
     Dosage: 125 MG, CYCLIC: DAILY FOR 21 DAYS/30 DAYS FOR 4 MONTHS
     Route: 048
  5. CALMING [Concomitant]
     Dosage: UNK (X6MONTHS)
     Dates: start: 20171219
  6. CALMING [Concomitant]
     Dosage: 1 DF, DAILY FOR 4 MONTHS
  7. PALBACE [Suspect]
     Active Substance: PALBOCICLIB
     Indication: BREAST CANCER METASTATIC
     Dosage: 125 MG, 1X/DAY (X6MONTHS)
     Route: 048
     Dates: start: 20171207

REACTIONS (4)
  - Neuropathy peripheral [Unknown]
  - Skin hypertrophy [Unknown]
  - Alopecia [Unknown]
  - Blood creatinine abnormal [Unknown]

NARRATIVE: CASE EVENT DATE: 20190329
